FAERS Safety Report 16568327 (Version 1)
Quarter: 2019Q3

REPORT INFORMATION
  Report Type: Spontaneous
  Country: FR (occurrence: FR)
  Receive Date: 20190712
  Receipt Date: 20190712
  Transmission Date: 20191004
  Serious: Yes (Other)
  Sender: FDA-Public Use
  Company Number: FR-ASCEND THERAPEUTICS-2070752

PATIENT
  Age: 32 Year
  Sex: Female

DRUGS (3)
  1. ESTROGEL [Suspect]
     Active Substance: ESTRADIOL
     Indication: HYPERANDROGENISM
     Route: 003
     Dates: start: 2000
  2. ANDROCUR (CYPROTERONE ACETATE)?INDICATION FOR USE: HYPERANDROGENEMIA) [Suspect]
     Active Substance: CYPROTERONE ACETATE
     Route: 048
     Dates: start: 2000
  3. OESTRODOSE (ESTRADIOL) INCONNU [Suspect]
     Active Substance: ESTRADIOL

REACTIONS (1)
  - Meningioma [Not Recovered/Not Resolved]
